FAERS Safety Report 20379517 (Version 3)
Quarter: 2022Q1

REPORT INFORMATION
  Report Type: Spontaneous
  Country: US (occurrence: US)
  Receive Date: 20220126
  Receipt Date: 20220317
  Transmission Date: 20220424
  Serious: Yes (Death)
  Sender: FDA-Public Use
  Company Number: US-PFIZER INC-202200130574

PATIENT
  Age: 79 Year
  Sex: Female
  Weight: 57.88 kg

DRUGS (1)
  1. PAXLOVID [Suspect]
     Active Substance: NIRMATRELVIR\RITONAVIR
     Indication: COVID-19
     Dosage: 1 NIRMATRELVIR 150MG TABLETS; 1 RITONAVIR 100 MG TABLET (RENAL DOSING)
     Dates: start: 20220113, end: 20220115

REACTIONS (4)
  - Death [Fatal]
  - Product prescribing error [Unknown]
  - Inappropriate schedule of product administration [Unknown]
  - Off label use [Unknown]

NARRATIVE: CASE EVENT DATE: 20220113
